FAERS Safety Report 25944713 (Version 3)
Quarter: 2025Q4

REPORT INFORMATION
  Report Type: Report from Study
  Country: US (occurrence: US)
  Receive Date: 20251021
  Receipt Date: 20251113
  Transmission Date: 20260117
  Serious: Yes (Other)
  Sender: JOHNSON AND JOHNSON
  Company Number: US-JNJFOC-20251014276

PATIENT
  Sex: Female

DRUGS (2)
  1. TREMFYA [Suspect]
     Active Substance: GUSELKUMAB
     Indication: Crohn^s disease
     Dosage: STRENGTH: 200.00 MG / 2.00 ML
  2. TREMFYA [Suspect]
     Active Substance: GUSELKUMAB
     Indication: Crohn^s disease
     Dosage: STRENGTH: 200.00 MG / 2.00 ML

REACTIONS (5)
  - Crohn^s disease [Unknown]
  - Accidental exposure to product [Unknown]
  - Device malfunction [Unknown]
  - Device deployment issue [Unknown]
  - Product dose omission issue [Unknown]
